FAERS Safety Report 4386525-6 (Version None)
Quarter: 2004Q2

REPORT INFORMATION
  Report Type: 
  Country: None (occurrence: None)
  Receive Date: 20040623
  Receipt Date: 20040607
  Transmission Date: 20050107
  Serious: Yes (Hospitalization, Other)
  Sender: FDA-Public Use
  Company Number: US_0406103585

PATIENT
  Age: 59 Year
  Sex: Female

DRUGS (7)
  1. LISPRO-. [Suspect]
     Indication: DIABETES MELLITUS NON-INSULIN-DEPENDENT
     Dosage: 12 U/3 DAY
     Dates: start: 20020308
  2. HUMULIN N [Suspect]
     Indication: DIABETES MELLITUS NON-INSULIN-DEPENDENT
     Dosage: 30 U DAY
     Dates: start: 20020308
  3. ZOLOFT [Concomitant]
  4. ACCUPRIL [Concomitant]
  5. DYAZIDE [Concomitant]
  6. TOPAMAX [Concomitant]
  7. CONJUGATED ESTROGEN [Concomitant]

REACTIONS (3)
  - ABDOMINAL DISTENSION [None]
  - CHEST PAIN [None]
  - PANCREATITIS [None]
